FAERS Safety Report 18025263 (Version 4)
Quarter: 2022Q3

REPORT INFORMATION
  Report Type: Spontaneous
  Country: CA (occurrence: CA)
  Receive Date: 20200715
  Receipt Date: 20220829
  Transmission Date: 20221026
  Serious: Yes (Hospitalization)
  Sender: FDA-Public Use
  Company Number: CA-SAMSUNG BIOEPIS-SB-2019-27129

PATIENT
  Age: 31 Year
  Sex: Male
  Weight: 115 kg

DRUGS (6)
  1. INFLIXIMAB [Suspect]
     Active Substance: INFLIXIMAB
     Indication: Crohn^s disease
     Route: 042
  2. CALCIUM CARBONATE [Concomitant]
     Active Substance: CALCIUM CARBONATE
     Indication: Product used for unknown indication
     Route: 048
  3. CALCIUM CARBONATE\CHOLECALCIFEROL [Concomitant]
     Active Substance: CALCIUM CARBONATE\CHOLECALCIFEROL
     Indication: Product used for unknown indication
     Route: 048
  4. MESALAMINE [Concomitant]
     Active Substance: MESALAMINE
     Indication: Product used for unknown indication
     Route: 054
  5. PENTASA [Concomitant]
     Active Substance: MESALAMINE
     Indication: Product used for unknown indication
     Route: 048
  6. PREDNISONE [Concomitant]
     Active Substance: PREDNISONE
     Indication: Product used for unknown indication
     Dosage: UNKNOWN
     Route: 065

REACTIONS (17)
  - Abdominal discomfort [Recovered/Resolved]
  - Defaecation urgency [Recovered/Resolved]
  - Headache [Recovered/Resolved]
  - Hyperhidrosis [Recovered/Resolved]
  - Illness [Recovered/Resolved]
  - Infection [Recovered/Resolved]
  - Localised infection [Recovered/Resolved]
  - Loss of personal independence in daily activities [Recovered/Resolved]
  - Nasopharyngitis [Recovered/Resolved]
  - Sinusitis [Recovered/Resolved]
  - COVID-19 [Recovered/Resolved]
  - Eye pruritus [Recovered/Resolved]
  - Weight increased [Recovered/Resolved]
  - Drug ineffective [Recovered/Resolved]
  - Inappropriate schedule of product administration [Recovered/Resolved]
  - Off label use [Recovered/Resolved]
  - Intentional product use issue [Recovered/Resolved]
